FAERS Safety Report 9109072 (Version 2)
Quarter: 2013Q4

REPORT INFORMATION
  Report Type: Report from Study
  Country: IT (occurrence: IT)
  Receive Date: 20130222
  Receipt Date: 20131010
  Transmission Date: 20140711
  Serious: Yes (Other)
  Sender: FDA-Public Use
  Company Number: IT-MERCK-2011SP040497

PATIENT
  Sex: 0

DRUGS (1)
  1. TEMOZOLOMIDE [Suspect]
     Indication: GLIOBLASTOMA

REACTIONS (2)
  - Neurotoxicity [Unknown]
  - Thrombocytopenia [Unknown]
